FAERS Safety Report 12636168 (Version 6)
Quarter: 2018Q4

REPORT INFORMATION
  Report Type: Spontaneous
  Country: US (occurrence: US)
  Receive Date: 20160809
  Receipt Date: 20181129
  Transmission Date: 20190204
  Serious: Yes (Other)
  Sender: FDA-Public Use
  Company Number: US-PFIZER INC-2016224356

PATIENT
  Age: 45 Year
  Sex: Female
  Weight: 57 kg

DRUGS (12)
  1. REVATIO [Suspect]
     Active Substance: SILDENAFIL CITRATE
     Indication: PULMONARY ARTERIAL HYPERTENSION
     Dosage: 20 MG, 3X/DAY
     Route: 048
     Dates: start: 20160505
  2. REVATIO [Suspect]
     Active Substance: SILDENAFIL CITRATE
     Dosage: 20 MG, 3X/DAY (QTY: 90 TABLET REFILL: 11)
     Route: 048
     Dates: start: 20180802
  3. FOLIC ACID. [Concomitant]
     Active Substance: FOLIC ACID
     Indication: ANAEMIA
  4. LASIX [Concomitant]
     Active Substance: FUROSEMIDE
     Dosage: 70 MG, 1X/DAY
  5. REVATIO [Suspect]
     Active Substance: SILDENAFIL CITRATE
     Indication: HYPERTENSION
     Dosage: 20 MG, 3X/DAY
  6. WARFARIN [Concomitant]
     Active Substance: WARFARIN
     Indication: MITRAL VALVE REPLACEMENT
     Dosage: 5.5 MG, 1X/DAY
     Dates: start: 200305
  7. PRILOSEC [Concomitant]
     Active Substance: OMEPRAZOLE MAGNESIUM
     Dosage: UNK
  8. DILTIAZEM. [Concomitant]
     Active Substance: DILTIAZEM
     Dosage: 120 MG, 1X/DAY
     Dates: end: 201602
  9. SYNTHROID [Concomitant]
     Active Substance: LEVOTHYROXINE SODIUM
     Indication: THYROID DISORDER
     Dosage: 25 UG, 1X/DAY
  10. UPTRAVI [Concomitant]
     Active Substance: SELEXIPAG
     Indication: PULMONARY HYPERTENSION
     Dosage: 200 UG, 2X/DAY
     Dates: start: 201603
  11. FOLIC ACID. [Concomitant]
     Active Substance: FOLIC ACID
     Indication: LIMB DISCOMFORT
     Dosage: 1 MG, 1X/DAY
     Dates: start: 201601
  12. LETAIRIS [Concomitant]
     Active Substance: AMBRISENTAN
     Dosage: UNK

REACTIONS (9)
  - Pulmonary oedema [Recovered/Resolved]
  - Therapeutic response unexpected [Recovered/Resolved]
  - Neck pain [Recovered/Resolved]
  - Bone pain [Recovered/Resolved]
  - Pyrexia [Recovered/Resolved]
  - Intentional product misuse [Recovered/Resolved]
  - Musculoskeletal pain [Recovered/Resolved]
  - Dyspnoea [Recovered/Resolved]
  - Pain in extremity [Recovered/Resolved]

NARRATIVE: CASE EVENT DATE: 20160726
